FAERS Safety Report 8159840-8 (Version None)
Quarter: 2012Q1

REPORT INFORMATION
  Report Type: 
  Country: None (occurrence: None)
  Receive Date: 20120223
  Receipt Date: 20111206
  Transmission Date: 20120608
  Serious: Yes (Other)
  Sender: FDA-Public Use
  Company Number: CA-JNJFOC-20111205224

PATIENT
  Sex: Female
  Weight: 65 kg

DRUGS (2)
  1. GABAPENTIN [Concomitant]
  2. REMICADE [Suspect]
     Indication: RHEUMATOID ARTHRITIS
     Route: 042
     Dates: start: 20020301

REACTIONS (1)
  - PRECANCEROUS SKIN LESION [None]
